FAERS Safety Report 21244680 (Version 2)
Quarter: 2022Q4

REPORT INFORMATION
  Report Type: Spontaneous
  Country: US (occurrence: US)
  Receive Date: 20220823
  Receipt Date: 20221129
  Transmission Date: 20230113
  Serious: No
  Sender: FDA-Public Use
  Company Number: US-INCYTE CORPORATION-2022IN007876

PATIENT

DRUGS (2)
  1. JAKAFI [Suspect]
     Active Substance: RUXOLITINIB
     Indication: Essential thrombocythaemia
     Dosage: 5 MILLIGRAM, BID
     Route: 048
     Dates: start: 20220113
  2. JAKAFI [Suspect]
     Active Substance: RUXOLITINIB
     Dosage: 5 MILLIGRAM, BID
     Route: 048
     Dates: start: 20220115

REACTIONS (8)
  - Laboratory test abnormal [Unknown]
  - Stomatitis [Recovering/Resolving]
  - Product dose omission issue [Unknown]
  - Ill-defined disorder [Recovering/Resolving]
  - Decreased immune responsiveness [Recovering/Resolving]
  - Feeding disorder [Recovering/Resolving]
  - Fluid intake reduced [Recovering/Resolving]
  - Off label use [Unknown]

NARRATIVE: CASE EVENT DATE: 20220113
